FAERS Safety Report 12818575 (Version 6)
Quarter: 2017Q1

REPORT INFORMATION
  Report Type: Report from Study
  Country: CA (occurrence: CA)
  Receive Date: 20161006
  Receipt Date: 20170313
  Transmission Date: 20170428
  Serious: Yes (Death, Hospitalization)
  Sender: FDA-Public Use
  Company Number: PHHY2016CA133750

PATIENT
  Age: 66 Year
  Sex: Female

DRUGS (3)
  1. TYKERB [Suspect]
     Active Substance: LAPATINIB DITOSYLATE
     Indication: BREAST CANCER METASTATIC
     Dosage: 1250 MG, UNK
     Route: 048
     Dates: start: 20160922, end: 20160927
  2. XELODA [Suspect]
     Active Substance: CAPECITABINE
     Indication: PRODUCT USED FOR UNKNOWN INDICATION
     Dosage: UNK
     Route: 065
     Dates: end: 20160927
  3. TYKERB [Suspect]
     Active Substance: LAPATINIB DITOSYLATE
     Dosage: UNK
     Route: 048
     Dates: start: 20161008

REACTIONS (8)
  - Dysstasia [Unknown]
  - Death [Fatal]
  - Constipation [Unknown]
  - Flatulence [Unknown]
  - Pain [Unknown]
  - Insomnia [Unknown]
  - Blood creatinine increased [Unknown]
  - Vomiting [Unknown]

NARRATIVE: CASE EVENT DATE: 20160923
